FAERS Safety Report 6170965-9 (Version None)
Quarter: 2009Q2

REPORT INFORMATION
  Report Type: 
  Country: None (occurrence: None)
  Receive Date: 20090427
  Receipt Date: 20090427
  Transmission Date: 20091009
  Serious: Yes (Disabling, Other)
  Sender: FDA-Public Use
  Company Number: None

PATIENT
  Age: 30 Year
  Sex: Female
  Weight: 68.0396 kg

DRUGS (1)
  1. LAMICTAL [Suspect]
     Indication: BIPOLAR DISORDER
     Dosage: 400MG 1X/DAY 047
     Route: 048
     Dates: start: 20071215

REACTIONS (5)
  - APHONIA [None]
  - DRUG LEVEL INCREASED [None]
  - DYSPHONIA [None]
  - RASH [None]
  - SCAR [None]
